FAERS Safety Report 4688853-3 (Version None)
Quarter: 2005Q2

REPORT INFORMATION
  Report Type: 
  Country: None (occurrence: None)
  Receive Date: 20050613
  Receipt Date: 20050531
  Transmission Date: 20051028
  Serious: Yes (Other)
  Sender: FDA-Public Use
  Company Number: GH-GLAXOSMITHKLINE-B0383937A

PATIENT

DRUGS (1)
  1. ALBENDAZOLE [Suspect]

REACTIONS (1)
  - VISUAL ACUITY REDUCED [None]
